FAERS Safety Report 6912648-0 (Version None)
Quarter: 2010Q3

REPORT INFORMATION
  Report Type: 
  Country: None (occurrence: None)
  Receive Date: 20100806
  Receipt Date: 20080919
  Transmission Date: 20110219
  Serious: No
  Sender: FDA-Public Use
  Company Number: US-PFIZER INC-2008079447

PATIENT
  Sex: Female
  Weight: 75 kg

DRUGS (4)
  1. GLIPIZIDE [Suspect]
     Indication: DIABETES MELLITUS
  2. ATENOLOL [Concomitant]
  3. SYNTHROID [Concomitant]
  4. METFORMIN HCL [Concomitant]

REACTIONS (1)
  - DIARRHOEA [None]
